FAERS Safety Report 24260706 (Version 1)
Quarter: 2024Q3

REPORT INFORMATION
  Report Type: Spontaneous
  Country: TW (occurrence: TW)
  Receive Date: 20240828
  Receipt Date: 20240828
  Transmission Date: 20241017
  Serious: Yes (Other)
  Sender: EMD SERONO INC
  Company Number: TW-Merck Healthcare KGaA-2024044922

PATIENT
  Age: 46 Year
  Sex: Male

DRUGS (1)
  1. TEPOTINIB [Suspect]
     Active Substance: TEPOTINIB
     Indication: Lung adenocarcinoma
     Dosage: 225 MG: 2 DOSAGE FORM, QD (ONCE A DAY).
     Dates: start: 20231013

REACTIONS (1)
  - Chylothorax [Not Recovered/Not Resolved]
